FAERS Safety Report 8826749 (Version 2)
Quarter: 2012Q4

REPORT INFORMATION
  Report Type: 
  Country: US (occurrence: US)
  Receive Date: 20121005
  Receipt Date: 20121019
  Transmission Date: 20130627
  Serious: Yes (Other)
  Sender: FDA-Public Use
  Company Number: CHPA2012US020538

PATIENT
  Age: 69 Year
  Sex: Female

DRUGS (2)
  1. BENEFIBER SUGAR FREE [Suspect]
     Indication: DIVERTICULUM
     Dosage: 3 DF, TID
     Dates: start: 2007
  2. DRUG THERAPY NOS [Concomitant]
     Dosage: Unk, Unk

REACTIONS (7)
  - Diverticulum [Recovered/Resolved]
  - Condition aggravated [Recovered/Resolved]
  - Abdominal pain [Recovered/Resolved]
  - Pyrexia [Recovered/Resolved]
  - Diarrhoea [Recovered/Resolved]
  - Abdominal discomfort [Not Recovered/Not Resolved]
  - Off label use [Unknown]
